FAERS Safety Report 5100703-X (Version None)
Quarter: 2006Q3

REPORT INFORMATION
  Report Type: 
  Country: None (occurrence: None)
  Receive Date: 20060906
  Receipt Date: 20060825
  Transmission Date: 20061208
  Serious: Yes (Hospitalization)
  Sender: FDA-Public Use
  Company Number: S06-FRA-03361-01

PATIENT
  Age: 38 Year
  Sex: Male
  Weight: 49 kg

DRUGS (5)
  1. SEROPRAM (CITALOPRAM HYDROBROMIDE) [Suspect]
     Dates: start: 20060522, end: 20060614
  2. ATOVAQUONE [Suspect]
     Dates: start: 20060530, end: 20060614
  3. ROVALCYTE (VALGANCICLOVIR) [Suspect]
     Dates: start: 20060530, end: 20060614
  4. PENTACARINAT [Concomitant]
  5. XANAX [Concomitant]

REACTIONS (2)
  - CYTOLYTIC HEPATITIS [None]
  - HEPATITIS CHOLESTATIC [None]
